FAERS Safety Report 6411630-X (Version None)
Quarter: 2009Q4

REPORT INFORMATION
  Report Type: 
  Country: None (occurrence: None)
  Receive Date: 20091023
  Receipt Date: 20091015
  Transmission Date: 20100525
  Serious: Yes (Other)
  Sender: FDA-Public Use
  Company Number: CA-ROCHE-662877

PATIENT
  Sex: Female

DRUGS (2)
  1. RIVOTRIL [Suspect]
     Indication: DRUG USE FOR UNKNOWN INDICATION
     Dosage: DURATION REPORTED AS 23 YEARS
     Route: 065
  2. CLONAZEPAM (NON-ROCHE) [Suspect]
     Indication: DRUG USE FOR UNKNOWN INDICATION
     Dosage: DURATION REPORTED AS 23 YEARS
     Route: 065

REACTIONS (9)
  - ALOPECIA [None]
  - ASTHENIA [None]
  - DEPRESSED LEVEL OF CONSCIOUSNESS [None]
  - DISTURBANCE IN ATTENTION [None]
  - FEAR [None]
  - INSOMNIA [None]
  - PAROSMIA [None]
  - PRURITUS [None]
  - SKIN DISORDER [None]
